FAERS Safety Report 26160726 (Version 1)
Quarter: 2025Q4

REPORT INFORMATION
  Report Type: Report from Study
  Country: EU (occurrence: EU)
  Receive Date: 20251216
  Receipt Date: 20251216
  Transmission Date: 20260117
  Serious: Yes (Death, Other)
  Sender: AUROBINDO
  Company Number: EU-MYLANLABS-2025M1101311

PATIENT
  Age: 64 Year
  Sex: Female

DRUGS (1)
  1. DASATINIB [Suspect]
     Active Substance: DASATINIB
     Indication: Blast crisis in myelogenous leukaemia
     Dosage: UNK
     Route: 065

REACTIONS (2)
  - Neutropenic colitis [Fatal]
  - Septic shock [Fatal]
